FAERS Safety Report 8595587-1 (Version None)
Quarter: 2012Q3

REPORT INFORMATION
  Report Type: 
  Country: None (occurrence: None)
  Receive Date: 20120801
  Receipt Date: 20120717
  Transmission Date: 20120928
  Serious: Yes (Other)
  Sender: FDA-Public Use
  Company Number: E2B_00000278

PATIENT
  Age: 78 Year
  Sex: Male
  Weight: 97.5234 kg

DRUGS (10)
  1. VALSARTAN + HYDROCHLOROTHIAZIDE (DIOVAN HCT) [Concomitant]
  2. ASPIRIN [Concomitant]
  3. LIPITOR [Concomitant]
  4. ISOSORBIDE MONONITRATE (IMUDR) [Concomitant]
  5. LORAZEPAM [Concomitant]
  6. GLYBURIDE [Concomitant]
  7. METOPROLOL TARTRATE [Concomitant]
  8. LEVOFLOXACIN [Suspect]
     Indication: INFECTION
     Dosage: 250 MG (250 MG, 1 IN 1 D), PER ORAL
     Route: 048
     Dates: start: 20120614, end: 20120617
  9. PLAVIX [Concomitant]
  10. ALLOPURINOL [Concomitant]

REACTIONS (3)
  - CEREBROVASCULAR ACCIDENT [None]
  - PAIN IN EXTREMITY [None]
  - BLOOD GLUCOSE ABNORMAL [None]
